FAERS Safety Report 20769295 (Version 4)
Quarter: 2022Q3

REPORT INFORMATION
  Report Type: Spontaneous
  Country: BR (occurrence: BR)
  Receive Date: 20220429
  Receipt Date: 20220912
  Transmission Date: 20221027
  Serious: Yes (Hospitalization, Other)
  Sender: FDA-Public Use
  Company Number: BR-AMGEN-BRASP2022069391

PATIENT
  Age: 62 Year
  Sex: Female
  Weight: 55 kg

DRUGS (5)
  1. PROLIA [Suspect]
     Active Substance: DENOSUMAB
     Indication: Osteoporosis
     Dosage: 60 MILLIGRAM, Q6MO
     Route: 065
     Dates: start: 20190530, end: 202204
  2. PROLIA [Suspect]
     Active Substance: DENOSUMAB
     Dosage: 60 MILLIGRAM, Q6MO
     Route: 058
     Dates: start: 20181210, end: 20210529
  3. LEVOTHYROXINE [Concomitant]
     Active Substance: LEVOTHYROXINE
     Indication: Hypothyroidism
  4. ROSUVASTATIN [Concomitant]
     Active Substance: ROSUVASTATIN
     Indication: Blood cholesterol abnormal
     Dosage: 5 MILLIGRAM
     Dates: start: 2012
  5. VITAMIN D [Concomitant]
     Active Substance: VITAMIN D NOS

REACTIONS (14)
  - Parkinson^s disease [Not Recovered/Not Resolved]
  - Spinal fracture [Recovering/Resolving]
  - Thoracic vertebral fracture [Unknown]
  - Fracture [Unknown]
  - Drug ineffective [Unknown]
  - Spinal column injury [Not Recovered/Not Resolved]
  - Somnolence [Not Recovered/Not Resolved]
  - Dysarthria [Not Recovered/Not Resolved]
  - Muscle contracture [Not Recovered/Not Resolved]
  - Blood calcium increased [Unknown]
  - Vitamin D increased [Unknown]
  - Chest pain [Not Recovered/Not Resolved]
  - Tremor [Not Recovered/Not Resolved]
  - Product dose omission issue [Unknown]

NARRATIVE: CASE EVENT DATE: 20210501
